FAERS Safety Report 16798499 (Version 1)
Quarter: 2019Q3

REPORT INFORMATION
  Report Type: Spontaneous
  Country: US (occurrence: US)
  Receive Date: 20190722
  Receipt Date: 20190722
  Transmission Date: 20191005
  Serious: No
  Sender: FDA-Public Use
  Company Number: None

PATIENT
  Age: 68 Year
  Sex: Female

DRUGS (1)
  1. KISQALI FEMARA CO-PACK [Suspect]
     Active Substance: LETROZOLE\RIBOCICLIB
     Indication: BREAST CANCER
     Dosage: ?          OTHER DOSE:600/2.5;?
     Route: 048
     Dates: start: 20180720

REACTIONS (2)
  - Drug level abnormal [None]
  - Wrong schedule [None]

NARRATIVE: CASE EVENT DATE: 20180720
